FAERS Safety Report 4385903-9 (Version None)
Quarter: 2004Q2

REPORT INFORMATION
  Report Type: 
  Country: None (occurrence: None)
  Receive Date: 20040628
  Receipt Date: 20040615
  Transmission Date: 20050107
  Serious: Yes (Other)
  Sender: FDA-Public Use
  Company Number: NL-GLAXOSMITHKLINE-B0336341A

PATIENT
  Age: 8 Year
  Sex: Male

DRUGS (7)
  1. FLUTICASONE PROPIONATE [Suspect]
     Route: 055
  2. FLUTICASONE PROPIONATE [Concomitant]
     Dosage: 50MCG TWICE PER DAY
     Route: 055
  3. VENTOLIN [Concomitant]
     Dosage: 200MCG UNKNOWN
     Route: 055
     Dates: start: 20031027
  4. ALLERGEN EXTRACT [Concomitant]
     Route: 065
  5. AERIUS [Concomitant]
     Dosage: 5MG PER DAY
     Route: 065
  6. SINGULAIR [Concomitant]
     Dosage: 5MG PER DAY
     Route: 065
  7. PLANT EXTRACTS [Concomitant]
     Route: 065

REACTIONS (2)
  - ABNORMAL BEHAVIOUR [None]
  - AGGRESSION [None]
